FAERS Safety Report 4626152-6 (Version None)
Quarter: 2005Q1

REPORT INFORMATION
  Report Type: 
  Country: None (occurrence: None)
  Receive Date: 20050330
  Receipt Date: 20050317
  Transmission Date: 20050727
  Serious: Yes (Hospitalization, Other)
  Sender: FDA-Public Use
  Company Number: 2005043296

PATIENT
  Age: 74 Year
  Sex: Male
  Weight: 86.1834 kg

DRUGS (8)
  1. CARDURA [Suspect]
     Indication: HYPERTENSION
     Dosage: 4 MG (4 MG, 1 IN 1 D), ORAL
     Route: 048
  2. CARDURA [Suspect]
     Indication: PROSTATIC DISORDER
     Dosage: 4 MG (4 MG, 1 IN 1 D), ORAL
     Route: 048
  3. DETROL LA [Suspect]
     Indication: ILL-DEFINED DISORDER
     Dosage: 4 MG (4 MG, 1 IN 1 D), ORAL
     Route: 048
     Dates: start: 20050303
  4. LORAZEPAM [Concomitant]
  5. LOTREL [Concomitant]
  6. CIPROFLOXACIN [Concomitant]
  7. ASPIRIN [Concomitant]
  8. AMIODARONE HCL [Concomitant]

REACTIONS (2)
  - DYSURIA [None]
  - HYPERTENSION [None]
